FAERS Safety Report 9602552 (Version 2)
Quarter: 2013Q4

REPORT INFORMATION
  Report Type: Spontaneous
  Country: US (occurrence: US)
  Receive Date: 20131007
  Receipt Date: 20131121
  Transmission Date: 20140711
  Serious: No
  Sender: FDA-Public Use
  Company Number: US-PFIZER INC-2013285021

PATIENT
  Age: 42 Year
  Sex: Female
  Weight: 65.76 kg

DRUGS (1)
  1. PRISTIQ [Suspect]
     Indication: FATIGUE
     Dosage: 50 MG, DAILY
     Dates: start: 2008

REACTIONS (2)
  - Drug ineffective for unapproved indication [Unknown]
  - Off label use [Unknown]
